FAERS Safety Report 5213448-2 (Version None)
Quarter: 2007Q1

REPORT INFORMATION
  Report Type: 
  Country: None (occurrence: None)
  Receive Date: 20070119
  Receipt Date: 20070108
  Transmission Date: 20070707
  Serious: Yes (Hospitalization)
  Sender: FDA-Public Use
  Company Number: CA-ELI_LILLY_AND_COMPANY-CA200701002725

PATIENT
  Age: 37 Year
  Sex: Female

DRUGS (14)
  1. FORTEO [Suspect]
     Indication: OSTEOPOROSIS
     Dosage: 20 UG, DAILY (1/D)
     Route: 058
     Dates: start: 20061107, end: 20061214
  2. LEFLUNOMIDE [Concomitant]
  3. PREDNISONE [Concomitant]
  4. AZATHIOPRINE [Concomitant]
  5. SERC [Concomitant]
  6. MEDROXYPROGESTERONE [Concomitant]
  7. AMLODIPINE BESYLATE [Concomitant]
  8. FERROUS GLUCONATE [Concomitant]
  9. OMEPRAZOLE [Concomitant]
  10. ATORVASTATIN CALCIUM [Concomitant]
  11. AMILORIDE HYDROCHLORIDE [Concomitant]
  12. WARFARIN SODIUM [Concomitant]
  13. ALFACALCIDOL [Concomitant]
  14. PROPRANOLOL HYDROCHLORIDE [Concomitant]

REACTIONS (1)
  - URINARY TRACT INFECTION [None]
